FAERS Safety Report 6340856-9 (Version None)
Quarter: 2009Q3

REPORT INFORMATION
  Report Type: 
  Country: None (occurrence: None)
  Receive Date: 20090904
  Receipt Date: 20090824
  Transmission Date: 20100115
  Serious: Yes (Hospitalization)
  Sender: FDA-Public Use
  Company Number: JP-PFIZER INC-2009233343

PATIENT
  Age: 82 Year

DRUGS (6)
  1. HEPARIN SODIUM [Suspect]
     Dosage: UNK
     Route: 041
  2. AMLODIPINE [Concomitant]
  3. BLOPRESS [Concomitant]
  4. MEVALOTIN [Concomitant]
  5. ALTAT [Concomitant]
  6. LASIX [Concomitant]

REACTIONS (2)
  - DISSEMINATED INTRAVASCULAR COAGULATION [None]
  - HEPARIN-INDUCED THROMBOCYTOPENIA [None]
